FAERS Safety Report 8804643 (Version 2)
Quarter: 2012Q4

REPORT INFORMATION
  Report Type: Report from Study
  Country: US (occurrence: US)
  Receive Date: 20120922
  Receipt Date: 20121107
  Transmission Date: 20130627
  Serious: No
  Sender: FDA-Public Use
  Company Number: US-ABBOTT-12P-163-0976004-00

PATIENT
  Sex: Male
  Weight: 70.37 kg

DRUGS (3)
  1. HUMIRA [Suspect]
     Indication: CROHN^S DISEASE
     Route: 058
     Dates: start: 200809
  2. GABAPENTIN [Concomitant]
     Indication: PRODUCT USED FOR UNKNOWN INDICATION
  3. OMEPRAZOLE [Concomitant]
     Indication: CROHN^S DISEASE

REACTIONS (7)
  - Hypoaesthesia [Not Recovered/Not Resolved]
  - Hypoaesthesia oral [Unknown]
  - Fall [Unknown]
  - Head injury [Unknown]
  - Scar [Unknown]
  - Diplopia [Unknown]
  - Neuropathy peripheral [Not Recovered/Not Resolved]
